FAERS Safety Report 11584717 (Version 1)
Quarter: 2015Q4

REPORT INFORMATION
  Report Type: Spontaneous
  Country: US (occurrence: US)
  Receive Date: 20151001
  Receipt Date: 20151001
  Transmission Date: 20160304
  Serious: No
  Sender: FDA-Public Use
  Company Number: PHHY2014US174460

PATIENT
  Age: 46 Year
  Sex: Female

DRUGS (14)
  1. BACLOFEN. [Concomitant]
     Active Substance: BACLOFEN
     Indication: MIGRAINE
     Dosage: 10 MG, UNK (ONE IN THE MORNING, ONE TABLET AT 17:00 AND TWO TABLETS AT BEDTIME
     Route: 048
     Dates: start: 1987, end: 20140515
  2. COROVAL B [Concomitant]
     Indication: HYPERTENSION
     Dosage: UNK (10/20 MG; IN THE MORNING)
     Route: 048
  3. OXYCONTIN [Concomitant]
     Active Substance: OXYCODONE HYDROCHLORIDE
     Indication: ARTHRITIS
     Dosage: (10/325 MG)
     Route: 048
     Dates: start: 20140515
  4. URSODIOL. [Concomitant]
     Active Substance: URSODIOL
     Indication: CHOLELITHIASIS
     Dosage: 250 MG, BID
     Route: 048
     Dates: start: 1993
  5. PHENERGAN                          /00488301/ [Concomitant]
     Active Substance: DIBROMPROPAMIDINE ISETHIONATE\PROMETHAZINE HYDROCHLORIDE
     Indication: NAUSEA
     Dosage: 25 MG, PRN
     Route: 048
  6. CAMBIA [Suspect]
     Active Substance: DICLOFENAC POTASSIUM
     Indication: MIGRAINE
     Dosage: 50 MG, PRN (DISSOLVED IN 4 OUNCES OF WATER; PRN)
     Route: 048
     Dates: start: 20140515
  7. TOPAMAX [Concomitant]
     Active Substance: TOPIRAMATE
     Indication: MIGRAINE
     Dosage: 100 MG, BID
     Route: 048
     Dates: start: 1987, end: 20140515
  8. METOPROLOL [Concomitant]
     Active Substance: METOPROLOL
     Indication: HYPERTENSION
     Dosage: 100 MG, BID
     Route: 048
  9. GABAPENTIN. [Concomitant]
     Active Substance: GABAPENTIN
     Indication: MIGRAINE
     Dosage: 300 MG, BID
     Route: 048
     Dates: start: 1987, end: 20140515
  10. APIDRA [Concomitant]
     Active Substance: INSULIN GLULISINE
     Indication: DIABETES MELLITUS
     Dosage: UNK (3 IU, BEFORE MEALS, DING SCALE INSULIN BASED ON BLOOD GLUCOSE RESULTS; PRIOR TO MEAL
     Route: 058
  11. LEVEMIR [Concomitant]
     Active Substance: INSULIN DETEMIR
     Indication: DIABETES MELLITUS
     Dosage: 8 IU, BID
     Route: 058
  12. ATENOLOL. [Concomitant]
     Active Substance: ATENOLOL
     Indication: HYPOTENSION
     Route: 048
  13. WARFARIN [Concomitant]
     Active Substance: WARFARIN
     Indication: THROMBOSIS PROPHYLAXIS
     Dosage: 6 MG, QD (IN THE MORNING)
     Route: 048
     Dates: start: 2005
  14. OMEPRAZOLE. [Concomitant]
     Active Substance: OMEPRAZOLE
     Indication: IMPAIRED GASTRIC EMPTYING
     Dosage: 20 MG, BID
     Route: 048

REACTIONS (1)
  - Drug administration error [Unknown]

NARRATIVE: CASE EVENT DATE: 20140515
